FAERS Safety Report 19443674 (Version 1)
Quarter: 2021Q2

REPORT INFORMATION
  Report Type: Spontaneous
  Country: IN (occurrence: IN)
  Receive Date: 20210621
  Receipt Date: 20210621
  Transmission Date: 20210717
  Serious: Yes (Death)
  Sender: FDA-Public Use
  Company Number: IN-PFIZER INC-2020442928

PATIENT
  Age: 51 Year
  Sex: Male

DRUGS (2)
  1. DACOPLICE [Suspect]
     Active Substance: DACOMITINIB
     Indication: LUNG ADENOCARCINOMA STAGE IV
     Dosage: 30 MG, 1X/DAY
     Route: 048
     Dates: start: 20201109
  2. DACOPLICE [Suspect]
     Active Substance: DACOMITINIB
     Dosage: 45 MG, DAILY
     Route: 048

REACTIONS (3)
  - Death [Fatal]
  - Vomiting [Unknown]
  - Off label use [Unknown]

NARRATIVE: CASE EVENT DATE: 202011
